FAERS Safety Report 4556714-6 (Version None)
Quarter: 2005Q1

REPORT INFORMATION
  Report Type: 
  Country: None (occurrence: None)
  Receive Date: 20050118
  Receipt Date: 20050110
  Transmission Date: 20050727
  Serious: Yes (Other)
  Sender: FDA-Public Use
  Company Number: S04-USA-07552-01

PATIENT
  Age: 66 Year
  Sex: Male
  Weight: 108.4097 kg

DRUGS (10)
  1. NAMENDA [Suspect]
     Indication: DEMENTIA
     Dosage: 10 MG BID PO
     Route: 048
     Dates: start: 20040816, end: 20040916
  2. PREVACID [Concomitant]
  3. TYLENOL [Concomitant]
  4. DULCOLAX [Concomitant]
  5. MULTI-VITAMIN [Concomitant]
  6. CARDIZEM (DELTIAZEM HYDROCHLORIDE) [Concomitant]
  7. PAXIL [Concomitant]
  8. SENOKOT [Concomitant]
  9. LACTULOSE [Concomitant]
  10. ZANTAC [Concomitant]

REACTIONS (7)
  - AMNESIA [None]
  - CONDITION AGGRAVATED [None]
  - GRAND MAL CONVULSION [None]
  - LETHARGY [None]
  - POSTICTAL STATE [None]
  - SYNCOPE [None]
  - TRANSIENT ISCHAEMIC ATTACK [None]
